FAERS Safety Report 25267210 (Version 1)
Quarter: 2025Q2

REPORT INFORMATION
  Report Type: Spontaneous
  Country: IN (occurrence: IN)
  Receive Date: 20250505
  Receipt Date: 20250505
  Transmission Date: 20250716
  Serious: Yes (Other)
  Sender: SOLARIS PHARMA CORPORATION
  Company Number: IN-SPC-000610

PATIENT
  Sex: Male

DRUGS (1)
  1. METRONIDAZOLE [Suspect]
     Active Substance: METRONIDAZOLE
     Indication: Liver abscess
     Dosage: 2.4 G/DAY
     Route: 065

REACTIONS (3)
  - Encephalopathy [Unknown]
  - Polyneuropathy [Unknown]
  - Product use in unapproved indication [Unknown]
